FAERS Safety Report 9288030 (Version 1)
Quarter: 2012Q4

REPORT INFORMATION
  Report Type: Spontaneous
  Country: US (occurrence: None)
  Receive Date: 20120913
  Receipt Date: 20120913
  Transmission Date: 20130627
  Serious: Yes (Hospitalization)
  Sender: FDA-Public Use
  Company Number: 2012PROUSA01779

PATIENT
  Age: 69 Year
  Sex: Male
  Weight: 117 kg

DRUGS (1)
  1. PROVENGE (SIPULEUCEL-T) SUSPENSION, 250ML [Suspect]
     Indication: PROSTATE CANCER METASTATIC
     Route: 042
     Dates: start: 20120730, end: 20120730

REACTIONS (6)
  - Atrial fibrillation [None]
  - Deep vein thrombosis [None]
  - Superior vena cava syndrome [None]
  - Jugular vein thrombosis [None]
  - Subclavian vein thrombosis [None]
  - Thrombosis in device [None]
